FAERS Safety Report 11863014 (Version 3)
Quarter: 2016Q1

REPORT INFORMATION
  Report Type: Spontaneous
  Country: US (occurrence: US)
  Receive Date: 20151223
  Receipt Date: 20160127
  Transmission Date: 20160526
  Serious: Yes (Hospitalization, Other)
  Sender: FDA-Public Use
  Company Number: US-DRREDDYS-USA/USA/15/0054856

PATIENT
  Age: 38 Year
  Sex: Male

DRUGS (4)
  1. TOPIRAMATE. [Suspect]
     Active Substance: TOPIRAMATE
     Indication: PROPHYLAXIS
     Route: 065
  2. LEVETIRACETAM. [Suspect]
     Active Substance: LEVETIRACETAM
     Indication: PROPHYLAXIS
     Route: 065
  3. LEVETIRACETAM. [Suspect]
     Active Substance: LEVETIRACETAM
     Route: 065
  4. OXCARBAZEPINE. [Suspect]
     Active Substance: OXCARBAZEPINE
     Indication: PROPHYLAXIS
     Route: 065

REACTIONS (6)
  - Generalised tonic-clonic seizure [Unknown]
  - Drug ineffective [Unknown]
  - Bradycardia [Recovering/Resolving]
  - Autonomic nervous system imbalance [Unknown]
  - Hypothermia [Recovering/Resolving]
  - Product quality issue [Unknown]
